FAERS Safety Report 18641034 (Version 2)
Quarter: 2021Q3

REPORT INFORMATION
  Report Type: Spontaneous
  Country: US (occurrence: US)
  Receive Date: 20201221
  Receipt Date: 20210906
  Transmission Date: 20211014
  Serious: Yes (Death, Other)
  Sender: FDA-Public Use
  Company Number: US-SA-2020SA361705

PATIENT
  Age: 18 Year
  Sex: Female
  Weight: 43.2 kg

DRUGS (1)
  1. DIPHENHYDRAMINE. [Suspect]
     Active Substance: DIPHENHYDRAMINE
     Indication: SUICIDE ATTEMPT
     Dosage: 1X, 3 BOXES WITH 24 TABLETS EACH, AND EACH TABLET CONTAINED 50 MG OF DPH

REACTIONS (5)
  - Pulmonary oedema [Fatal]
  - Cardiomegaly [Fatal]
  - Visceral congestion [Fatal]
  - Toxicity to various agents [Fatal]
  - Overdose [Fatal]
